FAERS Safety Report 17002860 (Version 1)
Quarter: 2019Q4

REPORT INFORMATION
  Report Type: Spontaneous
  Country: US (occurrence: US)
  Receive Date: 20191107
  Receipt Date: 20191107
  Transmission Date: 20200122
  Serious: No
  Sender: FDA-Public Use
  Company Number: US-ASTRAZENECA-2019SF44135

PATIENT
  Sex: Female

DRUGS (1)
  1. SYMBICORT [Suspect]
     Active Substance: BUDESONIDE\FORMOTEROL FUMARATE DIHYDRATE
     Dosage: 80 MCG+ 4.5 MCG, UNKNOWN UNKNOWN
     Route: 055

REACTIONS (3)
  - Device issue [Unknown]
  - Intentional product misuse [Unknown]
  - Cardiac disorder [Unknown]
